FAERS Safety Report 17253606 (Version 1)
Quarter: 2020Q1

REPORT INFORMATION
  Report Type: Spontaneous
  Country: US (occurrence: US)
  Receive Date: 20200109
  Receipt Date: 20200109
  Transmission Date: 20200409
  Serious: Yes (Death)
  Sender: FDA-Public Use
  Company Number: US-BAYER-2020-002087

PATIENT
  Age: 43 Year
  Sex: Female

DRUGS (4)
  1. PARACETAMOL [Suspect]
     Active Substance: ACETAMINOPHEN
     Route: 048
  2. ALCOHOL. [Suspect]
     Active Substance: ALCOHOL
  3. ALPRAZOLAM. [Suspect]
     Active Substance: ALPRAZOLAM
  4. SERTRALINE [Suspect]
     Active Substance: SERTRALINE HYDROCHLORIDE

REACTIONS (2)
  - Intentional overdose [Fatal]
  - Toxicity to various agents [Fatal]
